FAERS Safety Report 5329334-3 (Version None)
Quarter: 2007Q2

REPORT INFORMATION
  Report Type: 
  Country: None (occurrence: None)
  Receive Date: 20070518
  Receipt Date: 20070508
  Transmission Date: 20071010
  Serious: Yes (Other)
  Sender: FDA-Public Use
  Company Number: CA-PFIZER INC-2007038410

PATIENT
  Age: 78 Year
  Sex: Female

DRUGS (2)
  1. LYRICA [Suspect]
     Route: 048
  2. ALL OTHER THERAPEUTIC PRODUCTS [Concomitant]

REACTIONS (1)
  - GAMMA-GLUTAMYLTRANSFERASE INCREASED [None]
